FAERS Safety Report 9147618 (Version 1)
Quarter: 2013Q1

REPORT INFORMATION
  Report Type: Spontaneous
  Country: US (occurrence: US)
  Receive Date: 20130307
  Receipt Date: 20130307
  Transmission Date: 20140127
  Serious: Yes (Other)
  Sender: FDA-Public Use
  Company Number: US-PFIZER INC-2013078305

PATIENT
  Age: 41 Year
  Sex: Female
  Weight: 91.16 kg

DRUGS (13)
  1. LYRICA [Suspect]
     Indication: PAIN
     Dosage: UNK
     Dates: end: 201210
  2. LYRICA [Suspect]
     Indication: DEPRESSION
  3. METHADONE [Concomitant]
     Indication: PAIN
     Dosage: UNK
  4. HYDROMORPHONE [Concomitant]
     Indication: PAIN
     Dosage: UNK
  5. MORPHINE [Concomitant]
     Indication: PAIN
     Dosage: UNK
  6. OMEPRAZOLE [Concomitant]
     Indication: GASTROOESOPHAGEAL REFLUX DISEASE
     Dosage: UNK
  7. ATENOLOL [Concomitant]
     Indication: HYPERTENSION
     Dosage: UNK
  8. HYDROCHLOROTHIAZIDE [Concomitant]
     Indication: HYPERTENSION
     Dosage: UNK
  9. PROMETHAZINE [Concomitant]
     Indication: NAUSEA
     Dosage: UNK
  10. FUROSEMIDE [Concomitant]
     Indication: OEDEMA
     Dosage: UNK
  11. KLOR-CON [Concomitant]
     Dosage: UNK
  12. METHYLPHENIDATE [Concomitant]
     Dosage: UNK
  13. RANITIDINE [Concomitant]
     Dosage: UNK

REACTIONS (9)
  - Withdrawal syndrome [Unknown]
  - Activities of daily living impaired [Unknown]
  - Pain [Unknown]
  - Feeling abnormal [Unknown]
  - Anxiety [Unknown]
  - Depression [Unknown]
  - Panic disorder [Unknown]
  - Hyperhidrosis [Unknown]
  - Off label use [Unknown]
